APPROVED DRUG PRODUCT: SAXAGLIPTIN
Active Ingredient: SAXAGLIPTIN HYDROCHLORIDE
Strength: EQ 5MG BASE
Dosage Form/Route: TABLET;ORAL
Application: A206078 | Product #002
Applicant: SUN PHARMACEUTICAL INDUSTRIES LTD
Approved: Jul 31, 2023 | RLD: No | RS: No | Type: DISCN